FAERS Safety Report 18667934 (Version 1)
Quarter: 2020Q4

REPORT INFORMATION
  Report Type: Spontaneous
  Country: US (occurrence: US)
  Receive Date: 20201228
  Receipt Date: 20201228
  Transmission Date: 20210114
  Serious: Yes (Other)
  Sender: FDA-Public Use
  Company Number: US-ABBVIE-20K-163-3706592-00

PATIENT
  Age: 65 Year
  Sex: Male
  Weight: 74 kg

DRUGS (1)
  1. CREON [Suspect]
     Active Substance: PANCRELIPASE AMYLASE\PANCRELIPASE LIPASE\PANCRELIPASE PROTEASE
     Indication: PANCREATITIS CHRONIC
     Dosage: 6 CAPS TWICE DAILY, CAN^T REMEMBER, ABOUT 10 YEARS
     Route: 048
     Dates: start: 2010

REACTIONS (11)
  - Urinary tract infection [Unknown]
  - Gastritis [Recovered/Resolved]
  - Pulmonary fibrosis [Unknown]
  - Ulcer [Not Recovered/Not Resolved]
  - Spinal deformity [Unknown]
  - Spinal deformity [Not Recovered/Not Resolved]
  - Hip arthroplasty [Unknown]
  - Blood urea decreased [Unknown]
  - Aspartate aminotransferase increased [Unknown]
  - Flank pain [Not Recovered/Not Resolved]
  - Blood glucose abnormal [Unknown]

NARRATIVE: CASE EVENT DATE: 2018
